FAERS Safety Report 5821247-3 (Version None)
Quarter: 2008Q3

REPORT INFORMATION
  Report Type: 
  Country: None (occurrence: None)
  Receive Date: 20080722
  Receipt Date: 20080722
  Transmission Date: 20090109
  Serious: Yes (Hospitalization)
  Sender: FDA-Public Use
  Company Number: None

PATIENT
  Age: 67 Year
  Sex: Male
  Weight: 84.8226 kg

DRUGS (20)
  1. BEVACIZUMAB GENETECH [Suspect]
     Indication: NON-SMALL CELL LUNG CANCER
     Dosage: 15 MG/KG ONCE EVERY 3 WEEKS IV DRIP
     Route: 041
     Dates: start: 20080215, end: 20080620
  2. BORTEZOMIB MILLENNIUM [Suspect]
     Indication: NON-SMALL CELL LUNG CANCER
     Dosage: 1.3 MG/M2 WEEKLY X 2 WEEKS IV BOLUS
     Route: 040
     Dates: start: 20080215, end: 20080620
  3. LISINOPRIL [Concomitant]
  4. ACTOS [Concomitant]
  5. METOPROLOL SUCCINATE [Concomitant]
  6. GLIMEPIRIDE [Concomitant]
  7. ISOSORBIDE DINITRATE [Concomitant]
  8. GLIPIZIDE [Concomitant]
  9. NITROGLYCERIN [Concomitant]
  10. METFORMIN HCL [Concomitant]
  11. ZETIA [Concomitant]
  12. COMPAZINE [Concomitant]
  13. SIMVASTIN [Concomitant]
  14. PERCOCET [Concomitant]
  15. PROTONIX [Concomitant]
  16. RANITIDINE HCL [Concomitant]
  17. ZOFRAN [Concomitant]
  18. LORAZEPAM [Concomitant]
  19. ASPIRIN [Concomitant]
  20. OXYCODONE HCL [Concomitant]

REACTIONS (5)
  - ABDOMINAL PAIN [None]
  - DECREASED APPETITE [None]
  - METASTASES TO PANCREAS [None]
  - NAUSEA [None]
  - WEIGHT DECREASED [None]
